FAERS Safety Report 7955565-X (Version None)
Quarter: 2011Q4

REPORT INFORMATION
  Report Type: 
  Country: None (occurrence: None)
  Receive Date: 20111202
  Receipt Date: 20111128
  Transmission Date: 20120403
  Serious: Yes (Other)
  Sender: FDA-Public Use
  Company Number: US-ASTRAZENECA-2011SE61464

PATIENT
  Age: 6426 Day
  Sex: Female
  Weight: 76.4 kg

DRUGS (5)
  1. PULMICORT FLEXHALER [Suspect]
     Dosage: TWO PUFFS BID
     Route: 055
     Dates: start: 20110926
  2. PROAIR HFA [Concomitant]
     Indication: ASTHMA
     Dosage: TWO PUFFS TID - QID PRN
     Route: 048
  3. PULMICORT FLEXHALER [Suspect]
     Indication: ASTHMA
     Dosage: 180MCG TWO INHALATIONS, TWICE DAILY
     Route: 055
  4. RHINOCORT [Concomitant]
     Indication: RHINITIS ALLERGIC
     Dosage: BID
     Route: 045
     Dates: start: 20110926
  5. ALLEGRA [Concomitant]
     Indication: RHINITIS ALLERGIC
     Dosage: 180 QD
     Route: 048
     Dates: start: 20111003

REACTIONS (1)
  - SKIN STRIAE [None]
